FAERS Safety Report 15097541 (Version 1)
Quarter: 2018Q3

REPORT INFORMATION
  Report Type: Spontaneous
  Country: US (occurrence: US)
  Receive Date: 20180702
  Receipt Date: 20180702
  Transmission Date: 20181010
  Serious: No
  Sender: FDA-Public Use
  Company Number: US-MYLANLABS-2018M1047522

PATIENT
  Age: 71 Year
  Sex: Male

DRUGS (3)
  1. KLONOPIN [Concomitant]
     Active Substance: CLONAZEPAM
     Indication: INSOMNIA
     Dosage: 2 DF, PM
     Route: 048
  2. ACYCLOVIR TABLETS, USP [Suspect]
     Active Substance: ACYCLOVIR
     Indication: STOMATITIS
     Dosage: 2 DF, BID
     Route: 048
     Dates: start: 201806
  3. ACYCLOVIR OINTMENT USP, 5% [Suspect]
     Active Substance: ACYCLOVIR
     Indication: STOMATITIS
     Dosage: UNK, Q3H
     Route: 061
     Dates: start: 201806

REACTIONS (2)
  - Abdominal pain upper [Not Recovered/Not Resolved]
  - Insomnia [Not Recovered/Not Resolved]

NARRATIVE: CASE EVENT DATE: 201806
